FAERS Safety Report 5954060-7 (Version None)
Quarter: 2008Q4

REPORT INFORMATION
  Report Type: 
  Country: None (occurrence: None)
  Receive Date: 20081114
  Receipt Date: 20081103
  Transmission Date: 20090506
  Serious: Yes (Congenital Anomaly)
  Sender: FDA-Public Use
  Company Number: HU-PFIZER INC-2008095136

PATIENT
  Sex: Male

DRUGS (1)
  1. ALPRAZOLAM [Suspect]
     Dosage: DAILY DOSE:20MG
     Route: 064

REACTIONS (3)
  - CLEFT UVULA [None]
  - DRUG EXPOSURE DURING PREGNANCY [None]
  - PROMINENT EPICANTHAL FOLDS [None]
